FAERS Safety Report 8957747 (Version 1)
Quarter: 2012Q4

REPORT INFORMATION
  Report Type: 
  Country: GB (occurrence: GB)
  Receive Date: 20121210
  Receipt Date: 20121210
  Transmission Date: 20130627
  Serious: Yes (Life-Threatening, Other)
  Sender: FDA-Public Use
  Company Number: GB-PFIZER INC-2008008731JJ

PATIENT
  Age: 70 Year
  Weight: 57.5 kg

DRUGS (6)
  1. IBUPROFEN [Suspect]
     Indication: DRUG USE FOR UNKNOWN INDICATION
     Route: 048
     Dates: start: 200512, end: 200601
  2. AUGMENTIN [Suspect]
     Indication: ABSCESS
     Route: 048
     Dates: start: 200512, end: 200601
  3. OMEPRAZOLE [Concomitant]
     Indication: GASTRITIS
     Dosage: 40 MG
     Route: 048
     Dates: start: 20060113
  4. LACTULOSE [Concomitant]
     Indication: CONSTIPATION
     Dosage: 10 ML
     Route: 048
     Dates: start: 20060116
  5. PARACETAMOL [Concomitant]
     Indication: PAIN
     Dosage: 1 DOSE (S)
     Route: 048
     Dates: start: 20060116
  6. MOVICOL [Concomitant]
     Indication: CONSTIPATION
     Dosage: 1 DOSE (S)
     Route: 048
     Dates: start: 20060116

REACTIONS (2)
  - Jaundice cholestatic [Recovered/Resolved]
  - Duodenal ulcer haemorrhage [Recovered/Resolved]
